FAERS Safety Report 8307993-0 (Version None)
Quarter: 2012Q2

REPORT INFORMATION
  Report Type: 
  Country: None (occurrence: None)
  Receive Date: 20120424
  Receipt Date: 20120416
  Transmission Date: 20120825
  Serious: Yes (Hospitalization)
  Sender: FDA-Public Use
  Company Number: FR-GLAXOSMITHKLINE-B0795740A

PATIENT
  Sex: Male

DRUGS (4)
  1. ATORVASTATIN [Concomitant]
     Dosage: 20MG PER DAY
     Route: 048
  2. LAMICTAL [Suspect]
     Indication: EPILEPSY
     Dosage: 25MG PER DAY
     Route: 048
     Dates: start: 20120224, end: 20120331
  3. ASPIRIN [Concomitant]
     Dosage: 160MG PER DAY
     Route: 048
  4. IMOVANE [Concomitant]
     Dosage: 7.5MG PER DAY
     Route: 048

REACTIONS (3)
  - AGGRESSION [None]
  - IRRITABILITY [None]
  - PYREXIA [None]
